FAERS Safety Report 19280168 (Version 2)
Quarter: 2022Q1

REPORT INFORMATION
  Report Type: Spontaneous
  Country: US (occurrence: US)
  Receive Date: 20210520
  Receipt Date: 20220225
  Transmission Date: 20220423
  Serious: No
  Sender: FDA-Public Use
  Company Number: US-PFIZER INC-2021328903

PATIENT
  Age: 55 Year
  Sex: Female

DRUGS (1)
  1. XELJANZ XR [Suspect]
     Active Substance: TOFACITINIB CITRATE
     Indication: Rheumatoid arthritis
     Dosage: 11 MG, 1X/DAY
     Route: 048
     Dates: start: 20210208, end: 202105

REACTIONS (3)
  - Dermatitis psoriasiform [Recovered/Resolved]
  - Eczema [Recovered/Resolved]
  - Skin mass [Unknown]

NARRATIVE: CASE EVENT DATE: 20210401
